FAERS Safety Report 8030469-5 (Version None)
Quarter: 2012Q1

REPORT INFORMATION
  Report Type: 
  Country: None (occurrence: None)
  Receive Date: 20120109
  Receipt Date: 20111229
  Transmission Date: 20120608
  Serious: No
  Sender: FDA-Public Use
  Company Number: US-B.I. PHARMACEUTICALS,INC./RIDGEFIELD-2012-BP-00017BP

PATIENT
  Sex: Male

DRUGS (4)
  1. BYSTOLIC [Concomitant]
     Indication: BLOOD PRESSURE
  2. MICARDIS [Suspect]
     Indication: BLOOD PRESSURE
     Dosage: 80 MG
     Route: 048
     Dates: start: 20080101
  3. NEXIUM [Concomitant]
     Indication: GASTROOESOPHAGEAL REFLUX DISEASE
  4. PAMELOR [Concomitant]
     Indication: INSOMNIA

REACTIONS (1)
  - BLOOD SODIUM DECREASED [None]
